FAERS Safety Report 24983039 (Version 1)
Quarter: 2025Q1

REPORT INFORMATION
  Report Type: Report from Study
  Country: GB (occurrence: GB)
  Receive Date: 20250218
  Receipt Date: 20250218
  Transmission Date: 20250409
  Serious: Yes (Hospitalization)
  Sender: ABBVIE
  Company Number: GB-ABBVIE-6135472

PATIENT
  Age: 26 Year
  Sex: Female

DRUGS (2)
  1. SKYRIZI [Suspect]
     Active Substance: RISANKIZUMAB-RZAA
     Indication: Psoriasis
     Dosage: 150MG/1.0ML
     Route: 058
  2. SKYRIZI [Suspect]
     Active Substance: RISANKIZUMAB-RZAA
     Dosage: 150MG/1.0ML
     Route: 058

REACTIONS (5)
  - Kidney infection [Unknown]
  - Psoriasis [Unknown]
  - Tonsillitis [Unknown]
  - Anxiety [Unknown]
  - Fear of injection [Unknown]

NARRATIVE: CASE EVENT DATE: 20250101
